FAERS Safety Report 4366166-7 (Version None)
Quarter: 2004Q2

REPORT INFORMATION
  Report Type: 
  Country: None (occurrence: None)
  Receive Date: 20040526
  Receipt Date: 20040526
  Transmission Date: 20050107
  Serious: Yes (Other)
  Sender: FDA-Public Use
  Company Number: None

PATIENT
  Age: 69 Year
  Sex: Female
  Weight: 77.1 kg

DRUGS (2)
  1. GABAPENTIN [Suspect]
  2. SIMVASTATIN [Concomitant]

REACTIONS (1)
  - SEDATION [None]
